FAERS Safety Report 11520609 (Version 1)
Quarter: 2015Q3

REPORT INFORMATION
  Report Type: Report from Study
  Country: CA (occurrence: CA)
  Receive Date: 20150918
  Receipt Date: 20150918
  Transmission Date: 20151125
  Serious: Yes (Hospitalization)
  Sender: FDA-Public Use
  Company Number: CA-BIOGENIDEC-2015BI126155

PATIENT
  Age: 52 Year
  Sex: Female

DRUGS (1)
  1. TYSABRI [Suspect]
     Active Substance: NATALIZUMAB
     Indication: RELAPSING-REMITTING MULTIPLE SCLEROSIS
     Route: 042
     Dates: start: 20150330

REACTIONS (3)
  - Visual acuity reduced [Recovered/Resolved]
  - VIIth nerve paralysis [Recovered/Resolved]
  - Migraine [Unknown]

NARRATIVE: CASE EVENT DATE: 20150828
